FAERS Safety Report 12698966 (Version 2)
Quarter: 2016Q4

REPORT INFORMATION
  Report Type: Spontaneous
  Country: JP (occurrence: JP)
  Receive Date: 20160830
  Receipt Date: 20161005
  Transmission Date: 20170207
  Serious: Yes (Other)
  Sender: FDA-Public Use
  Company Number: JP-MYLANLABS-2016M1035577

PATIENT

DRUGS (3)
  1. NO DRUG NAME [Suspect]
     Active Substance: UNSPECIFIED INGREDIENT
     Indication: NEUROBLASTOMA
     Dosage: 100 MG/M2, QD
     Route: 041
  2. PARAPLATIN [Suspect]
     Active Substance: CARBOPLATIN
     Indication: NEUROBLASTOMA
     Dosage: 400 MG/M2, QD
     Route: 041
  3. ETOPOSIDE. [Suspect]
     Active Substance: ETOPOSIDE
     Indication: NEUROBLASTOMA
     Dosage: 200 MG/M2, QD
     Route: 041

REACTIONS (3)
  - Rhabdomyolysis [Unknown]
  - Dialysis [None]
  - Renal disorder [Unknown]
